FAERS Safety Report 9177042 (Version 2)
Quarter: 2013Q2

REPORT INFORMATION
  Report Type: Spontaneous
  Country: GB (occurrence: GB)
  Receive Date: 20130321
  Receipt Date: 20130405
  Transmission Date: 20140414
  Serious: Yes (Hospitalization)
  Sender: FDA-Public Use
  Company Number: GB-JNJFOC-20050106348

PATIENT
  Sex: Female

DRUGS (5)
  1. IBUPROFEN [Suspect]
     Indication: PERIARTHRITIS
     Route: 048
  2. IBUPROFEN [Suspect]
     Indication: TENDONITIS
     Route: 048
  3. ADVIL [Suspect]
     Indication: PERIARTHRITIS
     Route: 048
  4. ADVIL [Suspect]
     Indication: TENDONITIS
     Route: 048
  5. LITHIUM [Interacting]
     Indication: BIPOLAR DISORDER
     Route: 048

REACTIONS (7)
  - Toxicity to various agents [Recovered/Resolved]
  - Renal failure [Recovered/Resolved]
  - Drug interaction [Recovered/Resolved]
  - Drug level increased [Recovered/Resolved]
  - Stupor [None]
  - Confusional state [None]
  - Ataxia [None]
